FAERS Safety Report 24648499 (Version 1)
Quarter: 2024Q4

REPORT INFORMATION
  Report Type: Spontaneous
  Country: GB (occurrence: GB)
  Receive Date: 20241121
  Receipt Date: 20241121
  Transmission Date: 20250115
  Serious: Yes (Other)
  Sender: DR REDDYS
  Company Number: GB-GERMAN-LIT/GBR/24/0017189

PATIENT
  Age: 42 Year
  Sex: Male

DRUGS (5)
  1. COLESEVELAM [Suspect]
     Active Substance: COLESEVELAM
     Indication: Bile acid malabsorption
     Dates: start: 2019, end: 2023
  2. Colestryramine [Concomitant]
     Indication: Bile acid malabsorption
  3. RIFAXIMIN [Concomitant]
     Active Substance: RIFAXIMIN
     Indication: Gastrointestinal microorganism overgrowth
  4. LOPERAMIDE [Concomitant]
     Active Substance: LOPERAMIDE
     Indication: Bile acid malabsorption
  5. USTEKINUMAB [Concomitant]
     Active Substance: USTEKINUMAB
     Indication: Crohn^s disease

REACTIONS (1)
  - Drug ineffective for unapproved indication [Unknown]
